FAERS Safety Report 13638775 (Version 6)
Quarter: 2017Q4

REPORT INFORMATION
  Report Type: Spontaneous
  Country: US (occurrence: US)
  Receive Date: 20170609
  Receipt Date: 20171030
  Transmission Date: 20180320
  Serious: Yes (Hospitalization, Other)
  Sender: FDA-Public Use
  Company Number: US-009507513-1706USA003530

PATIENT
  Sex: Female
  Weight: 65.76 kg

DRUGS (1)
  1. NUVARING [Suspect]
     Active Substance: ETHINYL ESTRADIOL\ETONOGESTREL
     Indication: CONTRACEPTION
     Dosage: 0.12-0.015MG/24HR
     Route: 067
     Dates: start: 20110809, end: 20150704

REACTIONS (27)
  - Musculoskeletal pain [Recovered/Resolved]
  - Post-traumatic stress disorder [Not Recovered/Not Resolved]
  - Muscle spasms [Unknown]
  - Peripheral venous disease [Unknown]
  - International normalised ratio decreased [Unknown]
  - International normalised ratio decreased [Unknown]
  - Constipation [Unknown]
  - Hypoaesthesia [Recovered/Resolved]
  - Anxiety [Not Recovered/Not Resolved]
  - Drug intolerance [Unknown]
  - Headache [Unknown]
  - Pain in extremity [Recovered/Resolved]
  - Deep vein thrombosis [Unknown]
  - Pain in extremity [Unknown]
  - Urinary tract infection [Recovered/Resolved]
  - Treatment noncompliance [Unknown]
  - Headache [Recovered/Resolved]
  - Insomnia [Unknown]
  - Sleep apnoea syndrome [Unknown]
  - Fatigue [Unknown]
  - Venous stenosis [Unknown]
  - Depression [Not Recovered/Not Resolved]
  - May-Thurner syndrome [Unknown]
  - Restless legs syndrome [Unknown]
  - Deep vein thrombosis [Unknown]
  - International normalised ratio increased [Unknown]
  - Snoring [Unknown]

NARRATIVE: CASE EVENT DATE: 201207
